FAERS Safety Report 5390907-3 (Version None)
Quarter: 2007Q3

REPORT INFORMATION
  Report Type: 
  Country: None (occurrence: None)
  Receive Date: 20070716
  Receipt Date: 20070706
  Transmission Date: 20080115
  Serious: Yes (Hospitalization)
  Sender: FDA-Public Use
  Company Number: 2007BI006113

PATIENT
  Age: 57 Year
  Sex: Female

DRUGS (1)
  1. NATALIZUMAB [Suspect]
     Indication: MULTIPLE SCLEROSIS
     Dosage: 300 MCG; QM; IV
     Route: 042
     Dates: start: 20061207

REACTIONS (4)
  - ANKLE FRACTURE [None]
  - FALL [None]
  - FIBULA FRACTURE [None]
  - SPASTIC PARALYSIS [None]
